FAERS Safety Report 8381874-9 (Version None)
Quarter: 2012Q2

REPORT INFORMATION
  Report Type: 
  Country: None (occurrence: None)
  Receive Date: 20120522
  Receipt Date: 20120522
  Transmission Date: 20120825
  Serious: Yes (Hospitalization)
  Sender: FDA-Public Use
  Company Number: None

PATIENT
  Age: 57 Year
  Sex: Female
  Weight: 96.1626 kg

DRUGS (9)
  1. LOSARTAN POTASSIUM [Concomitant]
  2. CARVEDILOL [Concomitant]
  3. APAP TAB [Concomitant]
  4. SPIRONOLACTONE [Concomitant]
  5. PRADAXA [Suspect]
     Indication: ATRIAL FIBRILLATION
     Dosage: 150MG TWICE DAILY PO
     Route: 048
     Dates: start: 20111101, end: 20111129
  6. FUROSEMIDE [Concomitant]
  7. DIGOXIN [Concomitant]
  8. POLYETHYLENE GLYCOL [Concomitant]
  9. TEMAZEPAM [Concomitant]

REACTIONS (4)
  - PERIPHERAL ARTERIAL OCCLUSIVE DISEASE [None]
  - HAEMORRHOIDS [None]
  - GASTROINTESTINAL HAEMORRHAGE [None]
  - CARDIAC FAILURE CONGESTIVE [None]
